FAERS Safety Report 9556415 (Version 1)
Quarter: 2013Q3

REPORT INFORMATION
  Report Type: Spontaneous
  Country: US (occurrence: None)
  Receive Date: 20130906
  Receipt Date: 20130906
  Transmission Date: 20140515
  Serious: Yes (Hospitalization)
  Sender: FDA-Public Use
  Company Number: 163-POMAL-13062165

PATIENT
  Age: 80 Year
  Sex: Male

DRUGS (5)
  1. POMALYST [Suspect]
     Indication: PLASMA CELL MYELOMA
     Dosage: 4 MG, 1 IN 1 D, LOCAL INFILTRATION
     Dates: start: 201305
  2. ZANTAC (RANITIDINE HYDROCHLORIDE) [Concomitant]
  3. SM VITAMIN B12 (VITAMIN B12 NOS) [Concomitant]
  4. ASPIRIN (ACETYLSALICYLIC ACID) (ENTERIC-COATED TABLET) [Concomitant]
  5. LORATADINE (LORATADINE) (TABLETS) [Concomitant]

REACTIONS (1)
  - Pneumonia [None]
